FAERS Safety Report 8281358-2 (Version None)
Quarter: 2012Q2

REPORT INFORMATION
  Report Type: 
  Country: None (occurrence: None)
  Receive Date: 20120413
  Receipt Date: 20120409
  Transmission Date: 20120825
  Serious: No
  Sender: FDA-Public Use
  Company Number: US-PFIZER INC-2012088467

PATIENT
  Sex: Female
  Weight: 80.726 kg

DRUGS (3)
  1. EFFEXOR [Suspect]
     Dosage: WEANING OFF
     Route: 048
     Dates: start: 20120301, end: 20120406
  2. EFFEXOR [Suspect]
     Indication: ANXIETY
     Dosage: 25 MG, 1X/DAY
     Route: 048
     Dates: start: 20120101, end: 20120101
  3. EFFEXOR [Suspect]
     Dosage: 75 MG, 1X/DAY
     Route: 048
     Dates: start: 20120101, end: 20120301

REACTIONS (5)
  - WITHDRAWAL SYNDROME [None]
  - MIGRAINE [None]
  - DRUG INEFFECTIVE [None]
  - DIZZINESS [None]
  - VERTIGO [None]
